FAERS Safety Report 6430003-7 (Version None)
Quarter: 2009Q4

REPORT INFORMATION
  Report Type: 
  Country: None (occurrence: None)
  Receive Date: 20091106
  Receipt Date: 20091027
  Transmission Date: 20100525
  Serious: Yes (Death)
  Sender: FDA-Public Use
  Company Number: ES-JNJFOC-20091001459

PATIENT
  Age: 8 Year
  Sex: Male

DRUGS (6)
  1. REMICADE [Suspect]
     Indication: GRANULOMA
     Route: 042
     Dates: start: 20080401
  2. REMICADE [Suspect]
     Indication: IMMUNODEFICIENCY
     Route: 042
     Dates: start: 20080401
  3. CORTICOSTEROIDS [Concomitant]
     Indication: GRANULOMA
  4. CORTICOSTEROIDS [Concomitant]
     Indication: IMMUNODEFICIENCY
  5. IMMUNOGLOBULINS [Concomitant]
     Indication: GRANULOMA
  6. IMMUNOGLOBULINS [Concomitant]
     Indication: IMMUNODEFICIENCY

REACTIONS (5)
  - GRANULOMA [None]
  - IMMUNODEFICIENCY [None]
  - PNEUMONIA [None]
  - RENAL FAILURE [None]
  - SEPSIS [None]
